FAERS Safety Report 5651979-1 (Version None)
Quarter: 2008Q1

REPORT INFORMATION
  Report Type: 
  Country: None (occurrence: None)
  Receive Date: 20080305
  Receipt Date: 20080222
  Transmission Date: 20080703
  Serious: Yes (Other)
  Sender: FDA-Public Use
  Company Number: US-PFIZER INC-2008013878

PATIENT
  Sex: Male
  Weight: 90.909 kg

DRUGS (9)
  1. VIAGRA [Suspect]
     Indication: ERECTILE DYSFUNCTION
     Dates: start: 20040101, end: 20060101
  2. ROSIGLITAZONE [Concomitant]
  3. HYTRIN [Concomitant]
  4. OMEPRAZOLE [Concomitant]
  5. LISINOPRIL [Concomitant]
  6. GLIPIZIDE [Concomitant]
  7. AMLODIPINE [Concomitant]
  8. ALL OTHER THERAPEUTIC PRODUCTS [Concomitant]
  9. HYDROXYZINE [Concomitant]

REACTIONS (3)
  - BLINDNESS [None]
  - CEREBRAL INFARCTION [None]
  - VISUAL DISTURBANCE [None]
